FAERS Safety Report 7539624-1 (Version None)
Quarter: 2011Q2

REPORT INFORMATION
  Report Type: 
  Country: None (occurrence: None)
  Receive Date: 20110609
  Receipt Date: 20110609
  Transmission Date: 20111010
  Serious: Yes (Other)
  Sender: FDA-Public Use
  Company Number: None

PATIENT
  Age: 61 Year
  Sex: Male
  Weight: 70.7 kg

DRUGS (1)
  1. HEPARIN SODIUM INJECTION [Suspect]
     Dates: start: 20110603, end: 20110603

REACTIONS (1)
  - PRODUCT QUALITY ISSUE [None]
